FAERS Safety Report 20378201 (Version 4)
Quarter: 2022Q1

REPORT INFORMATION
  Report Type: Other
  Country: US (occurrence: None)
  Receive Date: 20220126
  Receipt Date: 20220307
  Transmission Date: 20220424
  Serious: Yes (Death)
  Sender: FDA-Public Use
  Company Number: US-ROCHE-3008946

PATIENT
  Age: 65 Year
  Sex: Female
  Weight: 70.824 kg

DRUGS (14)
  1. XOLAIR [Suspect]
     Active Substance: OMALIZUMAB
     Indication: Asthma
     Route: 058
     Dates: start: 20121108, end: 20190726
  2. CELEBREX [Concomitant]
     Active Substance: CELECOXIB
  3. LOTREL [Concomitant]
     Active Substance: AMLODIPINE BESYLATE\BENAZEPRIL HYDROCHLORIDE
  4. SINGULAIR [Concomitant]
     Active Substance: MONTELUKAST SODIUM
  5. ZYRTEC (UNITED STATES) [Concomitant]
  6. DYMISTA [Concomitant]
     Active Substance: AZELASTINE HYDROCHLORIDE\FLUTICASONE PROPIONATE
  7. SPIRIVA [Concomitant]
     Active Substance: TIOTROPIUM BROMIDE MONOHYDRATE
  8. VENTOLIN [Concomitant]
     Active Substance: ALBUTEROL SULFATE
  9. ASMANEX HFA [Concomitant]
     Active Substance: MOMETASONE FUROATE
  10. CRESTOR [Concomitant]
     Active Substance: ROSUVASTATIN CALCIUM
  11. ASPIRIN [Concomitant]
     Active Substance: ASPIRIN
  12. CLOPIDOGREL [Concomitant]
     Active Substance: CLOPIDOGREL BISULFATE
  13. GLIPIZIDE [Concomitant]
     Active Substance: GLIPIZIDE
  14. RANITIDINE [Concomitant]
     Active Substance: RANITIDINE

REACTIONS (1)
  - Pancreatic carcinoma [Fatal]

NARRATIVE: CASE EVENT DATE: 20190701
